FAERS Safety Report 10418098 (Version 1)
Quarter: 2014Q3

REPORT INFORMATION
  Report Type: Spontaneous
  Country: US (occurrence: None)
  Receive Date: 20140828
  Receipt Date: 20140828
  Transmission Date: 20150326
  Serious: Yes (Other)
  Sender: FDA-Public Use
  Company Number: None

PATIENT
  Age: 55 Year
  Sex: Male

DRUGS (1)
  1. FORTEO [Suspect]
     Active Substance: TERIPARATIDE
     Indication: SENILE OSTEOPOROSIS
     Dosage: INJECTABLE  QD  SUBCUTANEOUS
     Route: 058

REACTIONS (5)
  - Pain [None]
  - Back pain [None]
  - Eructation [None]
  - Chest pain [None]
  - Pollakiuria [None]

NARRATIVE: CASE EVENT DATE: 20140827
